FAERS Safety Report 11694078 (Version 2)
Quarter: 2015Q4

REPORT INFORMATION
  Report Type: Spontaneous
  Country: AT (occurrence: AT)
  Receive Date: 20151103
  Receipt Date: 20151118
  Transmission Date: 20160304
  Serious: Yes (Death, Other)
  Sender: FDA-Public Use
  Company Number: AT-BAYER-2015-449969

PATIENT
  Age: 73 Year
  Sex: Male

DRUGS (14)
  1. SEROPRAM [Concomitant]
     Active Substance: CITALOPRAM HYDROBROMIDE
  2. OLEOVIT [RETINOL] [Concomitant]
  3. PASPERTIN [Concomitant]
     Active Substance: METOCLOPRAMIDE HYDROCHLORIDE
  4. MARCOUMAR [Concomitant]
     Active Substance: PHENPROCOUMON
  5. DRONABINOL. [Concomitant]
     Active Substance: DRONABINOL
  6. MOVICOL [Concomitant]
     Active Substance: POLYETHYLENE GLYCOL 3350\POTASSIUM CHLORIDE\SODIUM BICARBONATE\SODIUM CHLORIDE
  7. MAXI-KALZ [CALCIUM CARBONATE] [Concomitant]
  8. BISOPROLOL [Concomitant]
     Active Substance: BISOPROLOL
  9. XOFIGO [Suspect]
     Active Substance: RADIUM RA-223 DICHLORIDE
     Indication: METASTASES TO BONE
  10. HYDAL [Concomitant]
     Active Substance: HYDROMORPHONE HYDROCHLORIDE
  11. NEURONTIN [Concomitant]
     Active Substance: GABAPENTIN
  12. MEXALEN [Concomitant]
     Active Substance: ACETAMINOPHEN
  13. XOFIGO [Suspect]
     Active Substance: RADIUM RA-223 DICHLORIDE
     Indication: PROSTATE CANCER STAGE IV
     Dosage: STOPPED AFTER 4 CYCLES
     Route: 042
     Dates: start: 201507, end: 201510
  14. NEODOLPASSE [Concomitant]

REACTIONS (6)
  - Prostate cancer [Fatal]
  - Metastasis [None]
  - Pain [None]
  - Lung disorder [None]
  - Metastases to bone [None]
  - Metastases to adrenals [None]

NARRATIVE: CASE EVENT DATE: 20151014
